FAERS Safety Report 15361907 (Version 1)
Quarter: 2018Q3

REPORT INFORMATION
  Report Type: Spontaneous
  Country: US (occurrence: US)
  Receive Date: 20180831
  Receipt Date: 20180831
  Transmission Date: 20181010
  Serious: Yes (Hospitalization)
  Sender: FDA-Public Use
  Company Number: None

PATIENT
  Sex: Male
  Weight: 77.85 kg

DRUGS (7)
  1. ELIQUIS [Concomitant]
     Active Substance: APIXABAN
  2. TYLENOL [Concomitant]
     Active Substance: ACETAMINOPHEN
  3. PANTOPRAZOLE [Concomitant]
     Active Substance: PANTOPRAZOLE
  4. SIMETHICONE (DIMETHICONE) [Concomitant]
     Active Substance: DIMETHICONE
  5. CENTRUM [Concomitant]
     Active Substance: VITAMINS
  6. COLACE [Concomitant]
     Active Substance: DOCUSATE SODIUM
  7. CAPECITABINE. [Suspect]
     Active Substance: CAPECITABINE
     Indication: PANCREATIC CARCINOMA
     Route: 048
     Dates: start: 20180712, end: 20180719

REACTIONS (2)
  - Gastrointestinal haemorrhage [None]
  - Cerebrovascular accident [None]
